FAERS Safety Report 7363891-0 (Version None)
Quarter: 2011Q1

REPORT INFORMATION
  Report Type: 
  Country: None (occurrence: None)
  Receive Date: 20110321
  Receipt Date: 20110311
  Transmission Date: 20110831
  Serious: Yes (Other)
  Sender: FDA-Public Use
  Company Number: DE-ROCHE-765030

PATIENT
  Sex: Male

DRUGS (2)
  1. AVASTIN [Suspect]
     Indication: COLORECTAL CANCER METASTATIC
     Route: 065
     Dates: start: 20110128
  2. CHEMOTHERAPY [Concomitant]
     Indication: COLORECTAL CANCER METASTATIC

REACTIONS (2)
  - CEREBROVASCULAR ACCIDENT [None]
  - BLINDNESS [None]
